FAERS Safety Report 25471015 (Version 3)
Quarter: 2025Q3

REPORT INFORMATION
  Report Type: Spontaneous
  Country: US (occurrence: US)
  Receive Date: 20250624
  Receipt Date: 20250819
  Transmission Date: 20251020
  Serious: Yes (Hospitalization, Other)
  Sender: BIOVITRUM
  Company Number: US-BIOVITRUM-2025-US-008780

PATIENT
  Age: 67 Year
  Sex: Male

DRUGS (2)
  1. VONJO [Suspect]
     Active Substance: PACRITINIB
     Indication: Chronic myelomonocytic leukaemia
     Route: 048
     Dates: start: 20250513
  2. VONJO [Suspect]
     Active Substance: PACRITINIB
     Route: 048

REACTIONS (6)
  - Infection [Not Recovered/Not Resolved]
  - Fatigue [Unknown]
  - Arthritis [Unknown]
  - Neuropathy peripheral [Unknown]
  - Intentional product misuse [Unknown]
  - Gastrointestinal infection [Unknown]
